FAERS Safety Report 12440748 (Version 4)
Quarter: 2017Q1

REPORT INFORMATION
  Report Type: Spontaneous
  Country: JP (occurrence: JP)
  Receive Date: 20160606
  Receipt Date: 20170306
  Transmission Date: 20170428
  Serious: Yes (Life-Threatening, Hospitalization, Disabling, Other)
  Sender: FDA-Public Use
  Company Number: JP-BAXALTA-2016BXJ003669

PATIENT
  Age: 62 Year
  Sex: Male
  Weight: 60.5 kg

DRUGS (34)
  1. FEIBA [Suspect]
     Active Substance: ANTI-INHIBITOR COAGULANT COMPLEX
     Dosage: 4000 IU, 1X A DAY
     Route: 042
     Dates: start: 20160516, end: 20160609
  2. FEIBA [Suspect]
     Active Substance: ANTI-INHIBITOR COAGULANT COMPLEX
     Dosage: 2000 IU, 1X A DAY
     Route: 042
     Dates: start: 20160627, end: 20160627
  3. MIDAZOLAM [Concomitant]
     Active Substance: MIDAZOLAM HYDROCHLORIDE
     Dosage: 10 MG, UNK
     Route: 042
     Dates: start: 20160525, end: 20160525
  4. FEIBA [Suspect]
     Active Substance: ANTI-INHIBITOR COAGULANT COMPLEX
     Dosage: 2000 IU, 1X A DAY
     Route: 042
     Dates: start: 20160511, end: 20160511
  5. NOVOSEVEN [Suspect]
     Active Substance: COAGULATION FACTOR VIIA RECOMBINANT HUMAN
     Indication: HAEMORRHAGE
     Dosage: 5 MG, 1X A DAY
     Route: 042
     Dates: start: 20160509, end: 20160522
  6. PROPOFOL. [Concomitant]
     Active Substance: PROPOFOL
     Indication: SEDATION
     Dosage: UNK
     Route: 042
     Dates: start: 20160516, end: 20160516
  7. PROPOFOL. [Concomitant]
     Active Substance: PROPOFOL
     Dosage: 500 MG, UNK
     Route: 042
     Dates: start: 20160526, end: 20160531
  8. FEIBA [Suspect]
     Active Substance: ANTI-INHIBITOR COAGULANT COMPLEX
     Dosage: 2000 IU, 1X A DAY
     Route: 042
     Dates: start: 20160629, end: 20160629
  9. NOVOSEVEN [Suspect]
     Active Substance: COAGULATION FACTOR VIIA RECOMBINANT HUMAN
     Dosage: 5 MG, UNK
     Route: 042
     Dates: start: 20160525, end: 20160608
  10. RECOMBINATE [Concomitant]
     Active Substance: ANTIHEMOPHILIC FACTOR, HUMAN RECOMBINANT
     Indication: FACTOR VIII DEFICIENCY
     Dosage: UNK
     Route: 042
     Dates: start: 200602, end: 200603
  11. ADVATE [Concomitant]
     Active Substance: ANTIHEMOPHILIC FACTOR, HUMAN RECOMBINANT
     Indication: FACTOR VIII DEFICIENCY
     Dosage: UNK
     Route: 042
     Dates: start: 20070906, end: 20080122
  12. FEIBA [Suspect]
     Active Substance: ANTI-INHIBITOR COAGULANT COMPLEX
     Dosage: 3000 IU, 1X A DAY
     Route: 042
     Dates: start: 20160622, end: 20160622
  13. FEIBA [Suspect]
     Active Substance: ANTI-INHIBITOR COAGULANT COMPLEX
     Dosage: 3000 IU, 1X A DAY
     Route: 042
     Dates: start: 20160624, end: 20160624
  14. MIDAZOLAM [Concomitant]
     Active Substance: MIDAZOLAM HYDROCHLORIDE
     Dosage: 40 MG, UNK
     Route: 042
     Dates: start: 20160518, end: 20160518
  15. NOVOSEVEN [Suspect]
     Active Substance: COAGULATION FACTOR VIIA RECOMBINANT HUMAN
     Dosage: 2 MG, 1X A DAY
     Route: 042
     Dates: start: 20160509, end: 20160522
  16. NOVOSEVEN [Suspect]
     Active Substance: COAGULATION FACTOR VIIA RECOMBINANT HUMAN
     Dosage: 2 MG, UNK
     Route: 042
     Dates: start: 20160513, end: 20160516
  17. BYCLOT [Suspect]
     Active Substance: COAGULATION FACTOR VII HUMAN\COAGULATION FACTOR X HUMAN
     Indication: HAEMORRHAGE
     Dosage: 5 UNK, 1X A DAY
     Route: 042
     Dates: start: 20160513, end: 20160526
  18. FENTANYL. [Concomitant]
     Active Substance: FENTANYL
     Indication: SEDATION
     Dosage: 0.4 MG, UNK
     Route: 042
     Dates: start: 20160516, end: 20160531
  19. FEIBA [Suspect]
     Active Substance: ANTI-INHIBITOR COAGULANT COMPLEX
     Dosage: 4000 IU, 1X A DAY
     Route: 042
     Dates: start: 20160613, end: 20160618
  20. FEIBA [Suspect]
     Active Substance: ANTI-INHIBITOR COAGULANT COMPLEX
     Dosage: 2000 IU, 1X A DAY
     Route: 042
     Dates: start: 20160701, end: 20160701
  21. FEIBA [Suspect]
     Active Substance: ANTI-INHIBITOR COAGULANT COMPLEX
     Dosage: 2000 IU, 1X A DAY
     Route: 042
     Dates: start: 20160704, end: 20160704
  22. SERENACE [Concomitant]
     Active Substance: HALOPERIDOL
     Indication: RESTLESSNESS
     Dosage: 2 MG, 1X A DAY
     Route: 042
     Dates: start: 20160515, end: 20160515
  23. MIDAZOLAM [Concomitant]
     Active Substance: MIDAZOLAM HYDROCHLORIDE
     Indication: SEDATION
     Dosage: 5 MG, UNK
     Route: 042
     Dates: start: 20160515, end: 20160515
  24. PROPOFOL. [Concomitant]
     Active Substance: PROPOFOL
     Dosage: 500 MG, UNK
     Route: 042
     Dates: start: 20160525, end: 20160526
  25. FEIBA [Suspect]
     Active Substance: ANTI-INHIBITOR COAGULANT COMPLEX
     Indication: HAEMOPHILIA A WITH ANTI FACTOR VIII
     Dosage: 4000 IU, 1X A DAY
     Route: 042
     Dates: start: 20160509, end: 20160509
  26. FEIBA [Suspect]
     Active Substance: ANTI-INHIBITOR COAGULANT COMPLEX
     Dosage: 4000 IU, 1X A DAY
     Route: 042
     Dates: start: 20160620, end: 20160620
  27. SOSEGON                            /00052101/ [Concomitant]
     Active Substance: PENTAZOCINE
     Indication: ANALGESIC THERAPY
  28. SERENACE [Concomitant]
     Active Substance: HALOPERIDOL
     Dosage: 5 MG, UNK
     Route: 042
     Dates: start: 20160516, end: 20160516
  29. MIDAZOLAM [Concomitant]
     Active Substance: MIDAZOLAM HYDROCHLORIDE
     Indication: ANALGESIC THERAPY
     Dosage: 10 MG, UNK
     Route: 042
     Dates: start: 20160516, end: 20160516
  30. FEIBA [Suspect]
     Active Substance: ANTI-INHIBITOR COAGULANT COMPLEX
     Dosage: 2000 IU, 1X A DAY
     Route: 042
     Dates: start: 20160706, end: 20160706
  31. SOSEGON                            /00052101/ [Concomitant]
     Active Substance: PENTAZOCINE
     Indication: SEDATION
     Dosage: 15 MG, UNK
     Route: 042
     Dates: start: 20160515, end: 20160516
  32. FLUMAZENIL. [Concomitant]
     Active Substance: FLUMAZENIL
     Indication: ANAESTHESIA REVERSAL
     Dosage: 0.5 MG, UNK
     Route: 042
     Dates: start: 20160515, end: 20160516
  33. MIDAZOLAM [Concomitant]
     Active Substance: MIDAZOLAM HYDROCHLORIDE
     Dosage: 20 MG, UNK
     Route: 042
     Dates: start: 20160518, end: 20160523
  34. PROPOFOL. [Concomitant]
     Active Substance: PROPOFOL
     Dosage: 1500 MG, UNK
     Route: 042
     Dates: start: 20160526, end: 20160526

REACTIONS (4)
  - Lower gastrointestinal haemorrhage [Recovered/Resolved]
  - Gastrointestinal haemorrhage [Unknown]
  - Haemorrhage subcutaneous [Unknown]
  - Cerebral infarction [Recovered/Resolved with Sequelae]

NARRATIVE: CASE EVENT DATE: 20160513
